FAERS Safety Report 8840603 (Version 1)
Quarter: 2012Q4

REPORT INFORMATION
  Report Type: 
  Country: JP (occurrence: JP)
  Receive Date: 20121015
  Receipt Date: 20121015
  Transmission Date: 20130627
  Serious: Yes (Other)
  Sender: FDA-Public Use
  Company Number: JP-PFIZER INC-2012224527

PATIENT
  Age: 13 Year
  Sex: Male
  Weight: 29 kg

DRUGS (1)
  1. GENOTROPIN TC [Suspect]
     Indication: DWARFISM
     Dosage: 1 mg, 1x/day
     Route: 058
     Dates: start: 20120814, end: 20120823

REACTIONS (2)
  - Depression [Recovered/Resolved]
  - Apathy [Recovered/Resolved]
